FAERS Safety Report 8262032-5 (Version None)
Quarter: 2012Q2

REPORT INFORMATION
  Report Type: 
  Country: None (occurrence: None)
  Receive Date: 20120405
  Receipt Date: 20120402
  Transmission Date: 20120825
  Serious: Yes (Hospitalization)
  Sender: FDA-Public Use
  Company Number: US-MEDIMMUNE-MEDI-0015353

PATIENT
  Sex: Male

DRUGS (2)
  1. SYNAGIS [Suspect]
     Dates: start: 20120118, end: 20120118
  2. SYNAGIS [Suspect]
     Dates: start: 20120216, end: 20120315

REACTIONS (4)
  - URTICARIA [None]
  - JOINT SWELLING [None]
  - ARTHRALGIA [None]
  - WHEEZING [None]
